FAERS Safety Report 23575175 (Version 1)
Quarter: 2024Q1

REPORT INFORMATION
  Report Type: Report from Study
  Country: EG (occurrence: EG)
  Receive Date: 20240228
  Receipt Date: 20240228
  Transmission Date: 20240409
  Serious: Yes (Other)
  Sender: FDA-Public Use
  Company Number: EG-BAYER-2024A006997

PATIENT
  Age: 36 Year
  Sex: Male

DRUGS (13)
  1. BETAFERON [Suspect]
     Active Substance: INTERFERON BETA-1B
     Indication: Multiple sclerosis
     Dosage: WHOLE VIAL EACH OTHER DAY, SUBCUTANEOUS
     Route: 058
     Dates: start: 202310
  2. PANADOL [Concomitant]
     Active Substance: ACETAMINOPHEN
     Indication: Analgesic therapy
     Dosage: 2 TABS BEFORE THE INJECTION AND OTHER 2 TABS AT NIGHT IF THE PAIN INCREASED
  3. DICLOFENAC SODIUM [Concomitant]
     Active Substance: DICLOFENAC\DICLOFENAC SODIUM
     Indication: Analgesic therapy
     Dosage: 1 TAB BEFORE BREAKFAST) IF THERE IS A PAIN AFTER WAKING UP
  4. SOLU-MEDROL [Concomitant]
     Active Substance: METHYLPREDNISOLONE SODIUM SUCCINATE
     Dosage: (3 TABS/DAY FOR 5 DAYS THEN 2 TABS/DAY FOR ANOTHER 5 DAYS THEN 1 TAB/DAY FOR ANOTHER 5 DAYS)
  5. PREDNISOLONE [Concomitant]
     Active Substance: PREDNISOLONE
     Dosage: (3 TABS/DAY FOR 5 DAYS THEN 2 TABS/DAY FOR ANOTHER 5 DAYS THEN 1 TAB/DAY FOR ANOTHER 5 DAYS)
  6. BETAHISTINE [Concomitant]
     Active Substance: BETAHISTINE
  7. GABAPENTIN [Concomitant]
     Active Substance: GABAPENTIN
  8. .ALPHA.-LIPOIC ACID [Concomitant]
     Active Substance: .ALPHA.-LIPOIC ACID
  9. CONTROLOC [Concomitant]
     Active Substance: PANTOPRAZOLE SODIUM
  10. MOBIC [Concomitant]
     Active Substance: MELOXICAM
     Indication: Antiinflammatory therapy
     Dosage: 1TAB/DAY (AT MORNING)
  11. BACLOFEN [Concomitant]
     Active Substance: BACLOFEN
     Indication: Muscle spasms
     Dosage: 25 MG (2 TAB/DAY) (ONCE AT MORNING AND THE OTHER NIGHT
  12. LACTOFERRIN [Concomitant]
     Active Substance: LACTOFERRIN
     Indication: Haemoglobin decreased
     Dosage: 2 DF, QD ONCE AT MORNING AND THE OTHER NIGHT
  13. ARCALION FORTE [Concomitant]
     Dosage: ON NEED

REACTIONS (15)
  - Multiple sclerosis [Not Recovered/Not Resolved]
  - Syncope [None]
  - Injection site swelling [Not Recovered/Not Resolved]
  - Product administered at inappropriate site [Unknown]
  - Product preparation issue [Unknown]
  - Haemoglobin decreased [Not Recovered/Not Resolved]
  - Pain [Recovering/Resolving]
  - Pyrexia [Recovering/Resolving]
  - Arthralgia [Recovering/Resolving]
  - Dyspnoea [Recovered/Resolved]
  - Loss of personal independence in daily activities [None]
  - Limb discomfort [Not Recovered/Not Resolved]
  - Gait disturbance [Not Recovered/Not Resolved]
  - Movement disorder [Not Recovered/Not Resolved]
  - Balance disorder [Not Recovered/Not Resolved]

NARRATIVE: CASE EVENT DATE: 20231001
